FAERS Safety Report 4633561-8 (Version None)
Quarter: 2005Q2

REPORT INFORMATION
  Report Type: 
  Country: None (occurrence: None)
  Receive Date: 20050411
  Receipt Date: 20050411
  Transmission Date: 20051028
  Serious: Yes (Hospitalization)
  Sender: FDA-Public Use
  Company Number: None

PATIENT
  Age: 69 Year
  Sex: Male
  Weight: 29.4838 kg

DRUGS (9)
  1. BACTRIM  DS   (SULFAMETHOXZOLE/TRIMETHOPRIM)    800/160         UNKNOW [Suspect]
     Indication: INFECTION PROPHYLAXIS
     Dosage: 1 TABLET    3X/WEEK   ORAL
     Route: 048
     Dates: start: 20050217, end: 20050304
  2. VANCOMYCIN     UNKNOWN     UNKNOWN [Suspect]
     Indication: CATHETER SEPSIS
     Dosage: 1000MG   PER LEVELS HD     INTRAVENOU
     Route: 042
     Dates: start: 20050227, end: 20050305
  3. VANCOMYCIN     UNKNOWN     UNKNOWN [Suspect]
     Indication: STAPHYLOCOCCAL INFECTION
     Dosage: 1000MG   PER LEVELS HD     INTRAVENOU
     Route: 042
     Dates: start: 20050227, end: 20050305
  4. AMLODIPINE [Concomitant]
  5. GABAPENTIN [Concomitant]
  6. METOPROLOL TARTRATE [Concomitant]
  7. NEPHROVITE [Concomitant]
  8. PANCREALIPASE [Concomitant]
  9. SERTRALINE [Concomitant]

REACTIONS (1)
  - TOXIC EPIDERMAL NECROLYSIS [None]
